FAERS Safety Report 21019491 (Version 1)
Quarter: 2022Q2

REPORT INFORMATION
  Report Type: Spontaneous
  Country: US (occurrence: US)
  Receive Date: 20220628
  Receipt Date: 20220628
  Transmission Date: 20220720
  Serious: No
  Sender: FDA-Public Use
  Company Number: US-JAZZ-2022-US-011555

PATIENT
  Age: 22 Year
  Sex: Male

DRUGS (1)
  1. XYREM [Suspect]
     Active Substance: SODIUM OXYBATE
     Indication: Product used for unknown indication
     Dosage: 9000 MILLIGRAM
     Dates: start: 20220325

REACTIONS (3)
  - Tachycardia [Recovered/Resolved]
  - Agitation [Recovered/Resolved]
  - Medication error [Unknown]
